FAERS Safety Report 19890788 (Version 1)
Quarter: 2021Q3

REPORT INFORMATION
  Report Type: Spontaneous
  Country: US (occurrence: US)
  Receive Date: 20210928
  Receipt Date: 20210928
  Transmission Date: 20211014
  Serious: No
  Sender: FDA-Public Use
  Company Number: None

PATIENT
  Age: 59 Year
  Sex: Male

DRUGS (1)
  1. EPCLUSA [Suspect]
     Active Substance: SOFOSBUVIR\VELPATASVIR
     Indication: HEPATITIS C
     Route: 048
     Dates: start: 20210821, end: 20210904

REACTIONS (4)
  - Movement disorder [None]
  - Pain [None]
  - Sleep disorder [None]
  - Arthralgia [None]

NARRATIVE: CASE EVENT DATE: 20210914
